FAERS Safety Report 8183401-8 (Version None)
Quarter: 2012Q1

REPORT INFORMATION
  Report Type: 
  Country: None (occurrence: None)
  Receive Date: 20120201
  Receipt Date: 20110722
  Transmission Date: 20120608
  Serious: No
  Sender: FDA-Public Use
  Company Number: 258866USA

PATIENT
  Age: 24 Year
  Sex: Male

DRUGS (1)
  1. PROPOXYPHENE NAPSYLATE AND ACETAMINOPHEN [Suspect]
     Indication: PAIN
     Dosage: 100/650MG; 1-2 TABLETS EVERY 4 TO 6 HOURS (AS REQUIRED)
     Dates: start: 20100901

REACTIONS (6)
  - ANXIETY [None]
  - NAUSEA [None]
  - DISORIENTATION [None]
  - PALPITATIONS [None]
  - HYPERHIDROSIS [None]
  - BLOOD PRESSURE INCREASED [None]
